FAERS Safety Report 6994134-5 (Version None)
Quarter: 2010Q3

REPORT INFORMATION
  Report Type: 
  Country: None (occurrence: None)
  Receive Date: 20100917
  Receipt Date: 20100616
  Transmission Date: 20110219
  Serious: No
  Sender: FDA-Public Use
  Company Number: US-ASTRAZENECA-2010SE28056

PATIENT
  Sex: Male
  Weight: 48.5 kg

DRUGS (2)
  1. SEROQUEL [Suspect]
     Route: 048
  2. PREDNISONE [Concomitant]

REACTIONS (6)
  - DEPERSONALISATION [None]
  - DRUG DOSE OMISSION [None]
  - INSOMNIA [None]
  - IRRITABILITY [None]
  - NERVOUSNESS [None]
  - WEIGHT DECREASED [None]
